APPROVED DRUG PRODUCT: COMBIVIR
Active Ingredient: LAMIVUDINE; ZIDOVUDINE
Strength: 150MG;300MG **Federal Register determination that product was not discontinued or withdrawn for safety or effectiveness reasons**
Dosage Form/Route: TABLET;ORAL
Application: N020857 | Product #001
Applicant: VIIV HEALTHCARE CO
Approved: Sep 26, 1997 | RLD: Yes | RS: No | Type: DISCN